FAERS Safety Report 9220549 (Version 1)
Quarter: 2013Q1

REPORT INFORMATION
  Report Type: Spontaneous
  Country: US (occurrence: US)
  Receive Date: 20120831
  Receipt Date: 20120831
  Transmission Date: 20140127
  Serious: No
  Sender: FDA-Public Use
  Company Number: 1000031020

PATIENT
  Sex: Female

DRUGS (1)
  1. DALIRESP [Suspect]
     Route: 048

REACTIONS (3)
  - Insomnia [None]
  - Depression [None]
  - Diarrhoea [None]
